FAERS Safety Report 5098913-3 (Version None)
Quarter: 2006Q3

REPORT INFORMATION
  Report Type: 
  Country: None (occurrence: None)
  Receive Date: 20060905
  Receipt Date: 20060825
  Transmission Date: 20061208
  Serious: Yes (Hospitalization)
  Sender: FDA-Public Use
  Company Number: 229137

PATIENT
  Age: 84 Year
  Sex: Female
  Weight: 63.5 kg

DRUGS (10)
  1. LUCENTIS [Suspect]
     Indication: MACULAR DEGENERATION
     Dosage: INTRAVITREAL
     Dates: start: 20060712
  2. AVASTIN [Suspect]
     Indication: MACULAR DEGENERATION
     Dosage: INTRAVITREAL
     Dates: start: 20060510, end: 20060612
  3. XOPENEX [Concomitant]
  4. DIOVAN [Concomitant]
  5. CARDIZEM LA (DILTIAZEM HYDROCHLORIDE) [Concomitant]
  6. ACTONEL [Concomitant]
  7. PLAQUENIL [Concomitant]
  8. SPIRIVA [Concomitant]
  9. XALATAN [Concomitant]
  10. PROTONIX [Concomitant]

REACTIONS (4)
  - ABNORMAL BEHAVIOUR [None]
  - CEREBELLAR INFARCTION [None]
  - HEADACHE [None]
  - VERTIGO [None]
